FAERS Safety Report 9690519 (Version 1)
Quarter: 2013Q4

REPORT INFORMATION
  Report Type: Report from Study
  Country: CH (occurrence: CH)
  Receive Date: 20131115
  Receipt Date: 20131115
  Transmission Date: 20140711
  Serious: Yes (Hospitalization)
  Sender: FDA-Public Use
  Company Number: CH-ROCHE-1299585

PATIENT
  Age: 73 Year
  Sex: Female

DRUGS (1)
  1. BEVACIZUMAB [Suspect]
     Indication: BRAIN NEOPLASM MALIGNANT
     Dosage: LAST DOSE: 04/JUL/2013
     Route: 042
     Dates: start: 20130604

REACTIONS (1)
  - Epilepsy [Not Recovered/Not Resolved]
